FAERS Safety Report 4840933-5 (Version None)
Quarter: 2005Q4

REPORT INFORMATION
  Report Type: 
  Country: None (occurrence: None)
  Receive Date: 20051130
  Receipt Date: 20050509
  Transmission Date: 20060501
  Serious: Yes (Other)
  Sender: FDA-Public Use
  Company Number: US-BRISTOL-MYERS SQUIBB COMPANY-12961348

PATIENT
  Age: 80 Year
  Sex: Female
  Weight: 35 kg

DRUGS (4)
  1. ABILIFY [Suspect]
     Indication: DEPRESSION
     Dosage: ALSO REPORTED AS 10 MG/DAY
     Route: 048
  2. ASPIRIN [Concomitant]
  3. DIGOXIN [Concomitant]
  4. WELLBUTRIN [Concomitant]

REACTIONS (5)
  - CATARACT [None]
  - FATIGUE [None]
  - SOMNOLENCE [None]
  - VISION BLURRED [None]
  - WEIGHT INCREASED [None]
